FAERS Safety Report 18324493 (Version 1)
Quarter: 2020Q3

REPORT INFORMATION
  Report Type: Spontaneous
  Country: DE (occurrence: DE)
  Receive Date: 20200929
  Receipt Date: 20200929
  Transmission Date: 20201103
  Serious: Yes (Hospitalization)
  Sender: FDA-Public Use
  Company Number: DE-MYLANLABS-2020M1081306

PATIENT
  Age: 81 Year
  Sex: Male
  Weight: 90 kg

DRUGS (11)
  1. LEVODOPA?CARBIDOPA [Concomitant]
     Active Substance: CARBIDOPA\LEVODOPA
     Dosage: 25|100 MG, 1?1?1?1, TABLETTEN
     Route: 048
  2. FEBUXOSTAT. [Suspect]
     Active Substance: FEBUXOSTAT
     Indication: PRODUCT USED FOR UNKNOWN INDICATION
     Dosage: 80 MG, 0?0.5?0?0, TABLETTEN
     Route: 048
  3. SPIRONOLACTONE. [Suspect]
     Active Substance: SPIRONOLACTONE
     Indication: PRODUCT USED FOR UNKNOWN INDICATION
     Dosage: 50 MG, 0?0.5?0?0, TABLETTEN
     Route: 048
  4. SITAGLIPTIN [Suspect]
     Active Substance: SITAGLIPTIN
     Indication: PRODUCT USED FOR UNKNOWN INDICATION
     Dosage: 50 MG, 0?1?0?0, TABLETTEN
     Route: 048
  5. BUDESONIDE W/FORMOTEROL FUMARATE [Concomitant]
     Active Substance: BUDESONIDE\FORMOTEROL FUMARATE
     Dosage: 200|6 ?G, 1?0?1?0, DOSIERAEROSOL
     Route: 055
  6. AMANTADIN                          /00055902/ [Concomitant]
     Dosage: 100 MG, 1?0?0?0, TABLETTEN
     Route: 048
  7. RAMIPRIL. [Suspect]
     Active Substance: RAMIPRIL
     Indication: PRODUCT USED FOR UNKNOWN INDICATION
     Dosage: 5 MG, 0?0?0.5?0, TABLETTEN
     Route: 048
  8. TORASEMID [Concomitant]
     Active Substance: TORSEMIDE
     Dosage: 20 MG, 1?1?0?0, TABLETTEN
     Route: 048
  9. PRAMIPEXOL                         /01356401/ [Concomitant]
     Active Substance: PRAMIPEXOLE
     Dosage: 0.18 MG, 1?1?0?1, TABLETTEN
     Route: 048
  10. LEVOTHYROXINE SODIUM. [Concomitant]
     Active Substance: LEVOTHYROXINE SODIUM
     Dosage: 75 ?G, 1?0?0?0, TABLETTEN
     Route: 048
  11. PREDNISOLON                        /00016201/ [Concomitant]
     Active Substance: PREDNISOLONE
     Dosage: 2 MG, 0?0?0?1, TABLETTEN
     Route: 048

REACTIONS (3)
  - Oedema peripheral [Unknown]
  - General physical health deterioration [Unknown]
  - Fatigue [Unknown]
